FAERS Safety Report 6035117-1 (Version None)
Quarter: 2009Q1

REPORT INFORMATION
  Report Type: 
  Country: None (occurrence: None)
  Receive Date: 20090112
  Receipt Date: 20090105
  Transmission Date: 20090719
  Serious: No
  Sender: FDA-Public Use
  Company Number: US-B.I. PHARMACEUTICALS,INC./RIDGEFIELD-2009-BP-00093BP

PATIENT
  Sex: Male

DRUGS (1)
  1. CATAPRES TABLETS (BLIND) [Suspect]

REACTIONS (2)
  - CHEST PAIN [None]
  - LEFT VENTRICULAR HYPERTROPHY [None]
